FAERS Safety Report 4421000-1 (Version None)
Quarter: 2004Q3

REPORT INFORMATION
  Report Type: 
  Country: None (occurrence: None)
  Receive Date: 20040809
  Receipt Date: 20040802
  Transmission Date: 20050211
  Serious: Yes (Life-Threatening, Hospitalization)
  Sender: FDA-Public Use
  Company Number: 2004-03363

PATIENT
  Sex: Female

DRUGS (1)
  1. BUPROPION HCL [Suspect]
     Indication: DRUG USE FOR UNKNOWN INDICATION
     Route: 048

REACTIONS (5)
  - CARDIAC DISORDER [None]
  - DERMATITIS EXFOLIATIVE [None]
  - MEDICATION ERROR [None]
  - RESPIRATORY DISORDER [None]
  - SKIN REACTION [None]
